FAERS Safety Report 6506595-6 (Version None)
Quarter: 2009Q4

REPORT INFORMATION
  Report Type: 
  Country: None (occurrence: None)
  Receive Date: 20091216
  Receipt Date: 20091201
  Transmission Date: 20100525
  Serious: Yes (Death)
  Sender: FDA-Public Use
  Company Number: 089

PATIENT
  Age: 54 Year
  Sex: Male
  Weight: 63.5036 kg

DRUGS (2)
  1. FAZACLO ODT [Suspect]
     Indication: SCHIZOPHRENIA
     Dosage: 400 MG PO DAILY
     Route: 048
     Dates: start: 20060505, end: 20061023
  2. RISPERDAL [Concomitant]

REACTIONS (2)
  - ARTERIOSCLEROSIS CORONARY ARTERY [None]
  - MALAISE [None]
